FAERS Safety Report 11189855 (Version 12)
Quarter: 2019Q2

REPORT INFORMATION
  Report Type: Spontaneous
  Country: US (occurrence: US)
  Receive Date: 20150615
  Receipt Date: 20190516
  Transmission Date: 20190711
  Serious: Yes (Hospitalization, Other)
  Sender: FDA-Public Use
  Company Number: US-PFIZER INC-2015158190

PATIENT
  Age: 75 Year
  Sex: Female
  Weight: 83 kg

DRUGS (10)
  1. MELOXICAM. [Concomitant]
     Active Substance: MELOXICAM
     Dosage: UNK
  2. OMEPRAZOLE. [Concomitant]
     Active Substance: OMEPRAZOLE
     Indication: GASTROOESOPHAGEAL REFLUX DISEASE
     Dosage: UNK
  3. CELEBREX [Suspect]
     Active Substance: CELECOXIB
     Indication: ARTHRITIS
     Dosage: 200 MG, 1X/DAY (ONCE IN THE MORNING))
     Route: 048
     Dates: start: 201504
  4. CELEBREX [Suspect]
     Active Substance: CELECOXIB
     Indication: RHEUMATOID ARTHRITIS
     Dosage: 200 MG, 1X/DAY
     Route: 048
     Dates: end: 201611
  5. METHIMAZOLE. [Concomitant]
     Active Substance: METHIMAZOLE
     Indication: THYROID DISORDER
     Dosage: UNK
  6. PERCOCET [Concomitant]
     Active Substance: ACETAMINOPHEN\OXYCODONE HYDROCHLORIDE
     Indication: PAIN
     Dosage: UNK
  7. CELEBREX [Suspect]
     Active Substance: CELECOXIB
     Indication: OSTEOARTHRITIS
  8. OXYCODONE [Concomitant]
     Active Substance: OXYCODONE
     Dosage: UNK, DAILY (AT NIGHT)
  9. CLONIDINE. [Concomitant]
     Active Substance: CLONIDINE
     Indication: BLOOD PRESSURE ABNORMAL
     Dosage: UNK
  10. GABAPENTIN. [Concomitant]
     Active Substance: GABAPENTIN
     Indication: MUSCLE SPASMS
     Dosage: UNK

REACTIONS (10)
  - Product dispensing error [Unknown]
  - Limb discomfort [Not Recovered/Not Resolved]
  - Thrombosis [Unknown]
  - Localised infection [Unknown]
  - Postoperative wound infection [Recovering/Resolving]
  - Therapeutic product effect incomplete [Unknown]
  - Pain [Unknown]
  - Lumbar spinal stenosis [Recovering/Resolving]
  - Bacterial infection [Unknown]
  - Joint injury [Unknown]

NARRATIVE: CASE EVENT DATE: 201612
